FAERS Safety Report 13090274 (Version 1)
Quarter: 2017Q1

REPORT INFORMATION
  Report Type: Spontaneous
  Country: None (occurrence: US)
  Receive Date: 20170105
  Receipt Date: 20170105
  Transmission Date: 20170428
  Serious: Yes (Hospitalization, Disabling)
  Sender: FDA-Public Use
  Company Number: US-ENDO PHARMACEUTICALS INC.-2015-005245

PATIENT
  Age: 57 Year
  Sex: Male
  Weight: 106.69 kg

DRUGS (3)
  1. METHADONE [Concomitant]
     Active Substance: METHADONE HYDROCHLORIDE
     Indication: BACK PAIN
     Route: 065
  2. ANDROGEL [Suspect]
     Active Substance: TESTOSTERONE
     Indication: ANDROGEN REPLACEMENT THERAPY
     Route: 065
     Dates: start: 20130419, end: 201309
  3. FORTESTA [Suspect]
     Active Substance: TESTOSTERONE
     Indication: ANDROGEN REPLACEMENT THERAPY
     Route: 061
     Dates: start: 201309, end: 20131230

REACTIONS (4)
  - Bradycardia [Unknown]
  - Deep vein thrombosis [Not Recovered/Not Resolved]
  - Diabetes mellitus [Unknown]
  - Emotional disorder [Not Recovered/Not Resolved]

NARRATIVE: CASE EVENT DATE: 20131230
